FAERS Safety Report 4448536-1 (Version None)
Quarter: 2004Q3

REPORT INFORMATION
  Report Type: 
  Country: None (occurrence: None)
  Receive Date: 20040909
  Receipt Date: 20040823
  Transmission Date: 20050211
  Serious: Yes (Hospitalization)
  Sender: FDA-Public Use
  Company Number: FR_040804639

PATIENT
  Age: 70 Year
  Sex: Female

DRUGS (3)
  1. GEMZAR [Suspect]
     Indication: NON-HODGKIN'S LYMPHOMA
     Dates: start: 20040701
  2. OXALIPLATIN [Concomitant]
  3. RADIATION THERAPY [Concomitant]

REACTIONS (1)
  - PULMONARY FIBROSIS [None]
